FAERS Safety Report 14222455 (Version 1)
Quarter: 2017Q4

REPORT INFORMATION
  Report Type: Report from Study
  Country: US (occurrence: US)
  Receive Date: 20171124
  Receipt Date: 20171124
  Transmission Date: 20180321
  Serious: Yes (Hospitalization)
  Sender: FDA-Public Use
  Company Number: US-SUN PHARMACEUTICAL INDUSTRIES LTD-2017US-155154

PATIENT
  Age: 21 Year
  Sex: Female

DRUGS (7)
  1. BACTRIM [Suspect]
     Active Substance: SULFAMETHOXAZOLE\TRIMETHOPRIM
     Indication: PRODUCT USED FOR UNKNOWN INDICATION
     Route: 065
  2. HUMIRA [Suspect]
     Active Substance: ADALIMUMAB
     Dosage: 40 MG 1 IN  2 WEEK
     Route: 058
     Dates: start: 201706, end: 201708
  3. HUMIRA [Suspect]
     Active Substance: ADALIMUMAB
     Dosage: 80 MG, DAILY, DAY 15 LOADING DOSE
     Route: 058
     Dates: start: 20170624, end: 20170624
  4. HUMIRA [Suspect]
     Active Substance: ADALIMUMAB
     Dosage: 80 MG, DAILY
     Route: 058
     Dates: start: 2017, end: 2017
  5. HUMIRA [Suspect]
     Active Substance: ADALIMUMAB
     Indication: CROHN^S DISEASE
     Dosage: 40 MG 1 IN  2 WEEK
     Route: 058
     Dates: start: 2017
  6. HUMIRA [Suspect]
     Active Substance: ADALIMUMAB
     Dosage: 160 MG, DAILY
     Route: 058
     Dates: start: 201709, end: 201709
  7. HUMIRA [Suspect]
     Active Substance: ADALIMUMAB
     Dosage: 160 MG, DAILY , DAY 1 LOADING DOSE
     Route: 058
     Dates: start: 20170610, end: 20170610

REACTIONS (10)
  - Malaise [Unknown]
  - Abscess limb [Unknown]
  - Constipation [Unknown]
  - Injection site rash [Recovered/Resolved]
  - Decreased appetite [Recovering/Resolving]
  - Injection site pain [Recovered/Resolved]
  - Diarrhoea [Unknown]
  - Injection site rash [Recovered/Resolved]
  - Drug hypersensitivity [Unknown]
  - Insomnia [Recovering/Resolving]

NARRATIVE: CASE EVENT DATE: 2017
